FAERS Safety Report 18960445 (Version 8)
Quarter: 2024Q2

REPORT INFORMATION
  Report Type: Spontaneous
  Country: US (occurrence: US)
  Receive Date: 20210302
  Receipt Date: 20240501
  Transmission Date: 20240716
  Serious: Yes (Other)
  Sender: FDA-Public Use
  Company Number: US-PFIZER INC-2019522366

PATIENT
  Age: 76 Year
  Sex: Female

DRUGS (5)
  1. IBRANCE [Suspect]
     Active Substance: PALBOCICLIB
     Indication: Invasive ductal breast carcinoma
     Dosage: 125 MG
  2. IBRANCE [Suspect]
     Active Substance: PALBOCICLIB
     Dosage: 100 MG, DAILY
     Route: 048
  3. IBRANCE [Suspect]
     Active Substance: PALBOCICLIB
     Dosage: 100 MG, 1X/DAY (1 TAB(S) ONCE A DAY), 21 TABLET (21 DAYS SUPPLY)
     Route: 048
  4. IBRANCE [Suspect]
     Active Substance: PALBOCICLIB
     Dosage: 125 MG
  5. ARIMIDEX [Concomitant]
     Active Substance: ANASTROZOLE
     Dosage: UNK

REACTIONS (3)
  - Neutropenia [Unknown]
  - Mental disorder [Unknown]
  - Alopecia [Unknown]
